FAERS Safety Report 18329322 (Version 2)
Quarter: 2020Q4

REPORT INFORMATION
  Report Type: Spontaneous
  Country: DE (occurrence: DE)
  Receive Date: 20200930
  Receipt Date: 20201015
  Transmission Date: 20210113
  Serious: Yes (Other)
  Sender: FDA-Public Use
  Company Number: DE-ACCORD-200396

PATIENT
  Age: 80 Year
  Sex: Male
  Weight: 65 kg

DRUGS (19)
  1. TAVOR [Concomitant]
     Dosage: ONLY IN AN EMERGENCY DURING AN ATTACK
  2. ZOPICLONE [Concomitant]
     Active Substance: ZOPICLONE
     Indication: SLEEP DISORDER
     Dosage: 7.5 MG,ONLY IN AN EMERGENCY WITH INSOMNIA
  3. LEVETIRACETAM. [Suspect]
     Active Substance: LEVETIRACETAM
     Indication: EPILEPSY
     Dosage: STRENGTH 500 MG, 500 - 0 - 750MG/DAY
     Route: 048
     Dates: start: 20200219
  4. ASS ABZ PROTECT [Concomitant]
     Indication: PROPHYLAXIS
     Dosage: 100 MG,1-0-0 AFTER EATING
  5. TASIGNA [Concomitant]
     Active Substance: NILOTINIB
     Dates: start: 201310
  6. LEVETIRACETAM. [Suspect]
     Active Substance: LEVETIRACETAM
     Indication: EPILEPSY
     Dosage: 500 - 0 - 750MG / DAY
     Route: 048
     Dates: start: 20190913
  7. LAMOTRIGINE. [Suspect]
     Active Substance: LAMOTRIGINE
     Indication: EPILEPSY
     Dosage: 0-0-25
     Dates: start: 20120626
  8. LAMOTRIGINE. [Suspect]
     Active Substance: LAMOTRIGINE
     Indication: EPILEPSY
     Dosage: 150-0-1150MG
     Dates: start: 20180211
  9. IMATINIB. [Concomitant]
     Active Substance: IMATINIB MESYLATE
     Indication: CHRONIC MYELOID LEUKAEMIA
     Dosage: 0-0-400
     Dates: start: 20140701, end: 20141222
  10. LAMOTRIGINE. [Suspect]
     Active Substance: LAMOTRIGINE
     Indication: EPILEPSY
     Dosage: 25 - 25 - 25MG
     Dates: start: 20161108
  11. LAMOTRIGINE. [Suspect]
     Active Substance: LAMOTRIGINE
     Indication: EPILEPSY
     Dosage: 200 - 0 - 200
     Dates: start: 20171107
  12. LAMOTRIGINE. [Suspect]
     Active Substance: LAMOTRIGINE
     Indication: EPILEPSY
     Dosage: 100-0-100MG
     Dates: start: 20171107
  13. LAMOTRIGINE. [Suspect]
     Active Substance: LAMOTRIGINE
     Indication: EPILEPSY
     Dosage: 125-0-125
     Dates: start: 20171220
  14. LEVETIRACETAM. [Suspect]
     Active Substance: LEVETIRACETAM
     Indication: EPILEPSY
     Dosage: STRENGTH 500 MG, 500 - 0 - 750MG/DAY
     Route: 048
     Dates: start: 20191030
  15. SIMVA BASICS [Concomitant]
     Active Substance: SIMVASTATIN
     Indication: BLOOD CHOLESTEROL
     Dosage: 20 MG,0-0-1 WITH OR AFTER EATING
  16. IMATINIB. [Concomitant]
     Active Substance: IMATINIB MESYLATE
     Indication: CHRONIC MYELOID LEUKAEMIA
     Dosage: 400 MG,4X100 MG / DAY
     Dates: start: 20020211
  17. LAMOTRIGINE. [Suspect]
     Active Substance: LAMOTRIGINE
     Indication: EPILEPSY
     Dosage: 75-0-75MG
     Dates: start: 20170207
  18. RAMIPRIL-ISIS [Concomitant]
     Indication: BLOOD PRESSURE MEASUREMENT
     Dosage: 2.5 MG,WITH OR AFTER EATING
     Dates: start: 20190705
  19. LEVETIRACETAM. [Suspect]
     Active Substance: LEVETIRACETAM
     Indication: EPILEPSY
     Dosage: STRENGTH 500 MG, 500 - 0 - 1000
     Route: 048
     Dates: start: 20191030

REACTIONS (10)
  - Vitamin B1 decreased [Not Recovered/Not Resolved]
  - Vitamin B12 decreased [Not Recovered/Not Resolved]
  - Dizziness [Not Recovered/Not Resolved]
  - Depression [Not Recovered/Not Resolved]
  - Adverse reaction [Unknown]
  - Vertigo positional [Not Recovered/Not Resolved]
  - Fatigue [Not Recovered/Not Resolved]
  - Vitamin B6 decreased [Not Recovered/Not Resolved]
  - Gait disturbance [Not Recovered/Not Resolved]
  - Basal cell carcinoma [Not Recovered/Not Resolved]

NARRATIVE: CASE EVENT DATE: 20190920
